FAERS Safety Report 7811519-5 (Version None)
Quarter: 2011Q4

REPORT INFORMATION
  Report Type: 
  Country: None (occurrence: None)
  Receive Date: 20111013
  Receipt Date: 20111013
  Transmission Date: 20120403
  Serious: Yes (Other)
  Sender: FDA-Public Use
  Company Number: None

PATIENT
  Sex: Female
  Weight: 62.1 kg

DRUGS (1)
  1. OFATUMUMAB [Suspect]
     Dosage: 300 MG
     Route: 042

REACTIONS (3)
  - RASH [None]
  - PRURITUS [None]
  - FLUSHING [None]
